FAERS Safety Report 20403640 (Version 1)
Quarter: 2022Q1

REPORT INFORMATION
  Report Type: Spontaneous
  Country: US (occurrence: US)
  Receive Date: 20220131
  Receipt Date: 20220131
  Transmission Date: 20220424
  Serious: No
  Sender: FDA-Public Use
  Company Number: US-DECIPHERA PHARMACEUTICALS LLC-2021US001137

PATIENT
  Sex: Male

DRUGS (1)
  1. QINLOCK [Suspect]
     Active Substance: RIPRETINIB
     Indication: Gastrointestinal stromal tumour
     Dosage: 150 MILLIGRAM, QD
     Route: 048
     Dates: start: 20211210

REACTIONS (10)
  - Renal disorder [Unknown]
  - Dysphagia [Unknown]
  - Blister [Unknown]
  - Peripheral swelling [Unknown]
  - Eructation [Unknown]
  - Nervousness [Unknown]
  - Fluid retention [Unknown]
  - Flatulence [Unknown]
  - Abdominal pain [Unknown]
  - Disease progression [Unknown]

NARRATIVE: CASE EVENT DATE: 20210101
